FAERS Safety Report 21148544 (Version 1)
Quarter: 2022Q3

REPORT INFORMATION
  Report Type: Spontaneous
  Country: US (occurrence: US)
  Receive Date: 20220729
  Receipt Date: 20220729
  Transmission Date: 20221026
  Serious: Yes (Other)
  Sender: FDA-Public Use
  Company Number: US-GE HEALTHCARE-2022CSU005026

PATIENT
  Age: 76 Year
  Sex: Male

DRUGS (10)
  1. VISIPAQUE [Suspect]
     Active Substance: IODIXANOL
     Indication: Thrombectomy
     Dosage: UNK, SINGLE
     Route: 065
     Dates: start: 20220207, end: 20220207
  2. VISIPAQUE [Suspect]
     Active Substance: IODIXANOL
     Indication: Computerised tomogram thorax
     Dosage: UNK, SINGLE
     Route: 065
     Dates: start: 20220208, end: 20220208
  3. VISIPAQUE [Suspect]
     Active Substance: IODIXANOL
     Indication: Arteriovenous fistula thrombosis
  4. VISIPAQUE [Suspect]
     Active Substance: IODIXANOL
     Indication: Pulmonary embolism
  5. VISIPAQUE [Suspect]
     Active Substance: IODIXANOL
     Indication: Tachycardia
  6. PROPOFOL [Concomitant]
     Active Substance: PROPOFOL
     Dosage: UNK
     Route: 065
     Dates: start: 20220207
  7. PHENYLEPHRINE [Concomitant]
     Active Substance: PHENYLEPHRINE HYDROCHLORIDE
     Dosage: UNK
     Route: 065
     Dates: start: 20220207
  8. CEFAZOLIN [Concomitant]
     Active Substance: CEFAZOLIN
     Dosage: UNK
     Route: 065
     Dates: start: 20220207
  9. HEPARIN [Concomitant]
     Active Substance: HEPARIN SODIUM
     Dosage: UNK
     Route: 065
     Dates: start: 20220207
  10. ALTEPLASE [Concomitant]
     Active Substance: ALTEPLASE
     Dosage: UNK
     Route: 065
     Dates: start: 20220207

REACTIONS (1)
  - Stevens-Johnson syndrome [Recovered/Resolved]

NARRATIVE: CASE EVENT DATE: 20220208
